FAERS Safety Report 16363857 (Version 1)
Quarter: 2019Q2

REPORT INFORMATION
  Report Type: Report from Study
  Country: US (occurrence: US)
  Receive Date: 20190528
  Receipt Date: 20190528
  Transmission Date: 20190711
  Serious: Yes (Hospitalization, Other)
  Sender: FDA-Public Use
  Company Number: US-GILEAD-2019-0409907

PATIENT
  Age: 22 Year
  Sex: Female

DRUGS (4)
  1. ORKAMBI [Concomitant]
     Active Substance: IVACAFTOR\LUMACAFTOR
  2. AZTREONAM LYSINE [Suspect]
     Active Substance: AZTREONAM LYSINE
     Indication: CYSTIC FIBROSIS
     Dosage: 1 ML TID 28 DAYS NO/OFF
     Route: 055
     Dates: start: 20180315
  3. DEKAS PLUS [Concomitant]
  4. TOBI PODHALER [Concomitant]
     Active Substance: TOBRAMYCIN

REACTIONS (3)
  - Blood count abnormal [Unknown]
  - Pyrexia [Unknown]
  - Infection [Unknown]

NARRATIVE: CASE EVENT DATE: 20190426
